FAERS Safety Report 17326194 (Version 2)
Quarter: 2020Q1

REPORT INFORMATION
  Report Type: Spontaneous
  Country: US (occurrence: US)
  Receive Date: 20200127
  Receipt Date: 20200221
  Transmission Date: 20200409
  Serious: No
  Sender: FDA-Public Use
  Company Number: US-ASTRAZENECA-2020SE04795

PATIENT
  Sex: Male
  Weight: 142.9 kg

DRUGS (3)
  1. BYDUREON BCISE [Suspect]
     Active Substance: EXENATIDE
     Indication: TYPE 2 DIABETES MELLITUS
     Route: 058
     Dates: start: 2019
  2. INSULIN [Concomitant]
     Active Substance: INSULIN NOS
     Dosage: CUT HIS INSULIN USE BY TWO-THIRDS
     Dates: start: 2019
  3. INSULIN [Concomitant]
     Active Substance: INSULIN NOS

REACTIONS (3)
  - Device leakage [Unknown]
  - Weight decreased [Recovering/Resolving]
  - Incorrect dose administered by device [Not Recovered/Not Resolved]
